FAERS Safety Report 14819282 (Version 1)
Quarter: 2018Q2

REPORT INFORMATION
  Report Type: Spontaneous
  Country: FR (occurrence: FR)
  Receive Date: 20180427
  Receipt Date: 20180427
  Transmission Date: 20180711
  Serious: Yes (Death)
  Sender: FDA-Public Use
  Company Number: FR-BAYER-2018-073410

PATIENT
  Age: 81 Year
  Sex: Male

DRUGS (7)
  1. FUROSEMIDE. [Concomitant]
     Active Substance: FUROSEMIDE
  2. BISOPROLOL HEMIFUMARATE [Concomitant]
     Active Substance: BISOPROLOL FUMARATE
  3. JOSIR [Concomitant]
     Active Substance: TAMSULOSIN
  4. SINTROM [Concomitant]
     Active Substance: ACENOCOUMAROL
  5. ATORVASTATIN [Concomitant]
     Active Substance: ATORVASTATIN
  6. NEXAVAR [Suspect]
     Active Substance: SORAFENIB
     Indication: HEPATOCELLULAR CARCINOMA
     Dosage: 2 DF, QD
     Route: 048
     Dates: start: 20180129
  7. DELURSAN [Concomitant]
     Active Substance: URSODIOL

REACTIONS (3)
  - Multiple organ dysfunction syndrome [Fatal]
  - Decreased appetite [Fatal]
  - Septic shock [Fatal]

NARRATIVE: CASE EVENT DATE: 201802
